FAERS Safety Report 14390496 (Version 2)
Quarter: 2022Q1

REPORT INFORMATION
  Report Type: Spontaneous
  Country: US (occurrence: US)
  Receive Date: 20180116
  Receipt Date: 20220204
  Transmission Date: 20220423
  Serious: Yes (Disabling)
  Sender: FDA-Public Use
  Company Number: US-TEVA-2018-US-845247

PATIENT
  Age: 57 Year
  Sex: Female

DRUGS (2)
  1. DOCETAXEL [Suspect]
     Active Substance: DOCETAXEL
     Dosage: DOSAGE: 144-147 MG, EVERY THREE WEEKS FOR 6 CYCLES
     Route: 065
     Dates: start: 20150212, end: 20150528
  2. DOCETAXEL [Suspect]
     Active Substance: DOCETAXEL
     Dosage: DOSAGE: 144-147 MG, EVERY THREE WEEKS FOR 6 CYCLES
     Route: 065
     Dates: start: 20150212, end: 20150528

REACTIONS (1)
  - Alopecia [Not Recovered/Not Resolved]
